FAERS Safety Report 17406738 (Version 1)
Quarter: 2020Q1

REPORT INFORMATION
  Report Type: Spontaneous
  Country: JP (occurrence: JP)
  Receive Date: 20200212
  Receipt Date: 20200212
  Transmission Date: 20200409
  Serious: Yes (Death, Hospitalization, Other)
  Sender: FDA-Public Use
  Company Number: JP-009507513-2002JPN000665J

PATIENT
  Age: 77 Year
  Sex: Male

DRUGS (4)
  1. ABRAXANE [Concomitant]
     Active Substance: PACLITAXEL
     Dosage: UNK UNK, QW
     Route: 065
     Dates: start: 20191206
  2. CARBOPLATIN. [Concomitant]
     Active Substance: CARBOPLATIN
     Indication: NON-SMALL CELL LUNG CANCER
     Dosage: UNK
     Route: 065
     Dates: start: 20191119
  3. ABRAXANE [Concomitant]
     Active Substance: PACLITAXEL
     Indication: NON-SMALL CELL LUNG CANCER
     Dosage: UNK UNK, QW
     Route: 065
     Dates: start: 20191119, end: 20191119
  4. KEYTRUDA [Suspect]
     Active Substance: PEMBROLIZUMAB
     Indication: NON-SMALL CELL LUNG CANCER
     Dosage: 200 MILLIGRAM, Q3W
     Route: 041
     Dates: start: 20191119, end: 20191119

REACTIONS (5)
  - Post procedural haemorrhage [Unknown]
  - Colitis [Unknown]
  - Diarrhoea [Unknown]
  - Drug-induced liver injury [Fatal]
  - Decreased appetite [Unknown]

NARRATIVE: CASE EVENT DATE: 20191121
